FAERS Safety Report 7084915-4 (Version None)
Quarter: 2010Q4

REPORT INFORMATION
  Report Type: 
  Country: None (occurrence: None)
  Receive Date: 20101105
  Receipt Date: 20101102
  Transmission Date: 20110411
  Serious: Yes (Other)
  Sender: FDA-Public Use
  Company Number: BE-WYE-G06906510

PATIENT
  Sex: Male
  Weight: 2.96 kg

DRUGS (1)
  1. EFFEXOR [Suspect]
     Indication: DEPRESSION
     Route: 064
     Dates: start: 20100201, end: 20101014

REACTIONS (3)
  - DRUG EXPOSURE DURING PREGNANCY [None]
  - LETHARGY [None]
  - PREMATURE BABY [None]
